FAERS Safety Report 21678284 (Version 1)
Quarter: 2022Q4

REPORT INFORMATION
  Report Type: Spontaneous
  Country: CA (occurrence: CA)
  Receive Date: 20221203
  Receipt Date: 20221203
  Transmission Date: 20230112
  Serious: Yes (Disabling, Other)
  Sender: FDA-Public Use
  Company Number: CA-002147023-NVSC2022CA277222

PATIENT
  Sex: Female

DRUGS (2)
  1. NILOTINIB [Suspect]
     Active Substance: NILOTINIB
     Indication: Chronic myeloid leukaemia
     Dosage: 400 MG
     Route: 065
  2. NILOTINIB [Suspect]
     Active Substance: NILOTINIB
     Dosage: 100 MG
     Route: 065

REACTIONS (13)
  - Rash pruritic [Recovering/Resolving]
  - Haemorrhage [Unknown]
  - Sleep disorder [Unknown]
  - Scar [Unknown]
  - Withdrawal syndrome [Unknown]
  - Gastrointestinal disorder [Recovered/Resolved]
  - Weight increased [Recovering/Resolving]
  - Headache [Unknown]
  - Bone pain [Unknown]
  - Alopecia [Recovering/Resolving]
  - Diarrhoea [Unknown]
  - Weight decreased [Unknown]
  - Incorrect dose administered [Unknown]
